FAERS Safety Report 19467246 (Version 1)
Quarter: 2021Q2

REPORT INFORMATION
  Report Type: Spontaneous
  Country: US (occurrence: US)
  Receive Date: 20210625
  Receipt Date: 20210625
  Transmission Date: 20210717
  Serious: Yes (Hospitalization)
  Sender: FDA-Public Use
  Company Number: None

PATIENT
  Age: 60 Year
  Sex: Male
  Weight: 79.2 kg

DRUGS (2)
  1. DEFINITY [Suspect]
     Active Substance: PERFLUTREN
     Indication: ECHOCARDIOGRAM
     Dosage: ?          OTHER FREQUENCY:ONCE;?
     Route: 040
     Dates: start: 20210625, end: 20210625
  2. DEFINITY [Concomitant]
     Active Substance: PERFLUTREN
     Dates: start: 20210625, end: 20210625

REACTIONS (1)
  - Presyncope [None]

NARRATIVE: CASE EVENT DATE: 20210625
